FAERS Safety Report 7863027-3 (Version None)
Quarter: 2011Q4

REPORT INFORMATION
  Report Type: 
  Country: None (occurrence: None)
  Receive Date: 20111027
  Receipt Date: 20101124
  Transmission Date: 20120403
  Serious: No
  Sender: FDA-Public Use
  Company Number: US-AMGEN-KDL256064

PATIENT
  Age: 54 Year
  Sex: Female

DRUGS (5)
  1. ENBREL [Suspect]
     Dates: start: 20071101
  2. FOSAMAX [Concomitant]
     Indication: OSTEOPENIA
  3. ENBREL [Suspect]
     Indication: RHEUMATOID ARTHRITIS
     Dosage: 50 MG, QWK
     Route: 058
     Dates: start: 20071128
  4. HYDROXYCHLOROQUINE SULFATE [Concomitant]
     Dosage: 400 MG, QD
     Dates: start: 20070601
  5. FOSAMAX [Concomitant]
     Indication: OSTEOPOROSIS

REACTIONS (7)
  - INJECTION SITE WARMTH [None]
  - OSTEOPOROSIS [None]
  - INJECTION SITE ERYTHEMA [None]
  - INJECTION SITE SWELLING [None]
  - BACK PAIN [None]
  - OSTEOARTHRITIS [None]
  - INJECTION SITE PRURITUS [None]
